FAERS Safety Report 8406387-7 (Version None)
Quarter: 2012Q2

REPORT INFORMATION
  Report Type: 
  Country: None (occurrence: None)
  Receive Date: 20120604
  Receipt Date: 20120531
  Transmission Date: 20120825
  Serious: Yes (Hospitalization, Other)
  Sender: FDA-Public Use
  Company Number: PHHY2010CA86149

PATIENT
  Sex: Male

DRUGS (10)
  1. INSULIN [Concomitant]
     Dosage: UNK UKN, UNK
  2. CELEXA [Concomitant]
     Dosage: UNK UKN, UNK
  3. SANDOSTATIN LAR [Suspect]
     Dosage: 30 MG EVERY 4 WEEKS
     Route: 030
  4. SANDOSTATIN LAR [Suspect]
     Dosage: 30 MG, QMO
     Route: 030
  5. LIPITOR [Concomitant]
     Dosage: UNK UKN, UNK
  6. SANDOSTATIN [Suspect]
     Indication: NEUROENDOCRINE TUMOUR
     Dosage: 150 UG, BID
     Route: 058
     Dates: end: 20101214
  7. PANTOPRAZOLE SODIUM [Concomitant]
     Dosage: UNK UKN, UNK
  8. DILAUDID [Concomitant]
     Dosage: UNK UKN, UNK
  9. SANDOSTATIN LAR [Suspect]
     Indication: NEUROENDOCRINE TUMOUR
     Dosage: 20 MG, QMO
     Route: 030
     Dates: start: 20101215
  10. DIAMICRON [Concomitant]
     Dosage: UNK UKN, UNK

REACTIONS (5)
  - ABDOMINAL INFECTION [None]
  - POSTOPERATIVE WOUND INFECTION [None]
  - BACK PAIN [None]
  - STAPHYLOCOCCAL INFECTION [None]
  - HERNIA [None]
